FAERS Safety Report 5085260-9 (Version None)
Quarter: 2006Q3

REPORT INFORMATION
  Report Type: 
  Country: None (occurrence: None)
  Receive Date: 20060816
  Receipt Date: 20060731
  Transmission Date: 20061208
  Serious: Yes (Hospitalization)
  Sender: FDA-Public Use
  Company Number: DSA_28393_2006

PATIENT
  Age: 70 Year
  Sex: Male
  Weight: 68 kg

DRUGS (10)
  1. RENIVACE [Suspect]
     Indication: HYPERTENSION
     Dosage: 5 MG Q DAY PO
     Route: 048
     Dates: start: 20060405, end: 20060515
  2. PANALDINE [Suspect]
     Indication: ANGINA PECTORIS
     Dosage: 100 MG BID PO
     Route: 048
     Dates: start: 20060405, end: 20060508
  3. PANALDINE [Suspect]
     Indication: CORONARY ARTERIAL STENT INSERTION
     Dosage: 100 MG BID PO
     Route: 048
     Dates: start: 20060405, end: 20060508
  4. LIVALO [Suspect]
     Indication: HYPERLIPIDAEMIA
     Dosage: 2 MG Q DAY PO
     Route: 048
     Dates: start: 20060405, end: 20060409
  5. LIVALO [Suspect]
     Indication: HYPERLIPIDAEMIA
     Dosage: 2 MG Q DAY PO
     Route: 048
     Dates: start: 20060501
  6. SIGMART [Suspect]
     Indication: ANGINA PECTORIS
     Dosage: 5 MG TID PO
     Route: 048
     Dates: start: 20060407, end: 20060515
  7. CALBLOCK [Suspect]
     Indication: HYPERTENSION
     Dosage: 16 MG Q DAY PO
     Route: 048
     Dates: start: 20060405, end: 20060515
  8. ARTIST [Suspect]
     Indication: ANGINA PECTORIS
     Dosage: 2.5 MG BID PO
     Route: 048
     Dates: start: 20060405, end: 20060515
  9. ARTIST [Suspect]
     Indication: HYPERTONIA
     Dosage: 2.5 MG BID PO
     Route: 048
     Dates: start: 20060405, end: 20060515
  10. 8-HOUR BAYER [Concomitant]

REACTIONS (8)
  - ALANINE AMINOTRANSFERASE INCREASED [None]
  - ASPARTATE AMINOTRANSFERASE INCREASED [None]
  - BLOOD ALKALINE PHOSPHATASE INCREASED [None]
  - BLOOD BILIRUBIN INCREASED [None]
  - GAMMA-GLUTAMYLTRANSFERASE INCREASED [None]
  - LIVER DISORDER [None]
  - LYMPHOCYTE STIMULATION TEST [None]
  - LYMPHOCYTE STIMULATION TEST POSITIVE [None]
